FAERS Safety Report 21477604 (Version 1)
Quarter: 2022Q4

REPORT INFORMATION
  Report Type: Spontaneous
  Country: US (occurrence: None)
  Receive Date: 20221018
  Receipt Date: 20221018
  Transmission Date: 20230113
  Serious: No
  Sender: FDA-Public Use
  Company Number: None

PATIENT

DRUGS (23)
  1. CAPECITABINE [Suspect]
     Active Substance: CAPECITABINE
     Indication: Breast cancer female
     Dosage: OTHER FREQUENCY : EVERY12HRS;?
     Route: 048
  2. ALBUTEROL [Concomitant]
  3. ALENDRONATE [Concomitant]
  4. ARTIFICAL EYE [Concomitant]
  5. ASPIRIN ADULT LOW DOSE [Concomitant]
  6. ATORVASTATIN [Concomitant]
  7. CALCIUM 600+D [Concomitant]
  8. CHLORHEXIDINE ACETATE [Concomitant]
  9. CLONAZEPAM [Concomitant]
     Active Substance: CLONAZEPAM
  10. DOXYCYCLINE [Concomitant]
  11. ERYTHROMYCIN [Concomitant]
  12. FLONASE ALLERGG RELIEF [Concomitant]
  13. GABAPENTIN [Concomitant]
  14. HYDROOXYZINE [Concomitant]
  15. LACTOBACILIUS [Concomitant]
  16. MELOATONIN [Concomitant]
  17. METHLMAZOLE [Concomitant]
  18. MULTIVITAMINS/MINERALS [Concomitant]
  19. OXYCODONE [Concomitant]
  20. PAROXETINE [Concomitant]
  21. PROPRANOLOL [Concomitant]
     Active Substance: PROPRANOLOL HYDROCHLORIDE
  22. TRAMADOL [Concomitant]
  23. VITAMIN B12 [Concomitant]
     Active Substance: CYANOCOBALAMIN

REACTIONS (2)
  - Recurrent cancer [None]
  - Therapy non-responder [None]
